FAERS Safety Report 25167511 (Version 1)
Quarter: 2025Q2

REPORT INFORMATION
  Report Type: Spontaneous
  Country: IT (occurrence: IT)
  Receive Date: 20250407
  Receipt Date: 20250407
  Transmission Date: 20250717
  Serious: Yes (Death)
  Sender: ADC THERAPEUTICS
  Company Number: IT-BIOVITRUM-2025-IT-004498

PATIENT
  Age: 74 Year
  Sex: Male

DRUGS (2)
  1. ZYNLONTA [Suspect]
     Active Substance: LONCASTUXIMAB TESIRINE-LPYL
     Indication: Product used for unknown indication
  2. ZYNLONTA [Suspect]
     Active Substance: LONCASTUXIMAB TESIRINE-LPYL

REACTIONS (2)
  - Disease recurrence [Fatal]
  - Infection [Unknown]
